FAERS Safety Report 12216845 (Version 1)
Quarter: 2016Q1

REPORT INFORMATION
  Report Type: Spontaneous
  Country: US (occurrence: US)
  Receive Date: 20160329
  Receipt Date: 20160329
  Transmission Date: 20160526
  Serious: No
  Sender: FDA-Public Use
  Company Number: US-TEVA-642040ACC

PATIENT
  Age: 20 Year
  Sex: Female
  Weight: 69.92 kg

DRUGS (1)
  1. PLAN B ONE-STEP [Suspect]
     Active Substance: LEVONORGESTREL
     Indication: POST COITAL CONTRACEPTION
     Route: 048
     Dates: start: 20160224, end: 20160224

REACTIONS (5)
  - Dizziness [Recovered/Resolved]
  - Increased appetite [Not Recovered/Not Resolved]
  - Nausea [Recovered/Resolved]
  - Vaginal haemorrhage [Not Recovered/Not Resolved]
  - Vaginal exfoliation [Recovered/Resolved]

NARRATIVE: CASE EVENT DATE: 20160301
